FAERS Safety Report 7845146-0 (Version None)
Quarter: 2011Q4

REPORT INFORMATION
  Report Type: 
  Country: None (occurrence: None)
  Receive Date: 20111025
  Receipt Date: 20111018
  Transmission Date: 20120403
  Serious: Yes (Hospitalization)
  Sender: FDA-Public Use
  Company Number: AT-CEPHALON-2011005426

PATIENT
  Sex: Female
  Weight: 59 kg

DRUGS (9)
  1. ASPIRIN [Concomitant]
  2. ENALAPRIL HCT [Concomitant]
  3. RITUXIMAB [Suspect]
     Indication: NODAL MARGINAL ZONE B-CELL LYMPHOMA
     Route: 042
     Dates: start: 20110620
  4. LEVOTHYROXINE SODIUM [Concomitant]
  5. METOCLOPRAMIDE HYDROCHLORIDE [Concomitant]
  6. CENIPRES [Concomitant]
  7. BENDAMUSTINE HCL [Suspect]
     Indication: NODAL MARGINAL ZONE B-CELL LYMPHOMA
     Route: 042
     Dates: start: 20110621
  8. MOVIPREP [Concomitant]
  9. PANTOPRAZOLE SODIUM [Concomitant]

REACTIONS (1)
  - ATRIAL FIBRILLATION [None]
